FAERS Safety Report 20477369 (Version 1)
Quarter: 2022Q1

REPORT INFORMATION
  Report Type: Spontaneous
  Country: US (occurrence: US)
  Receive Date: 20220215
  Receipt Date: 20220215
  Transmission Date: 20220423
  Serious: Yes (Other)
  Sender: FDA-Public Use
  Company Number: US-SUN PHARMACEUTICAL INDUSTRIES LTD-2022R1-326232

PATIENT
  Age: 70 Year
  Sex: Female

DRUGS (2)
  1. CARBOPLATIN [Suspect]
     Active Substance: CARBOPLATIN
     Indication: Chemotherapy
     Dosage: UNK
     Route: 033
  2. MITOMYCIN C [Suspect]
     Active Substance: MITOMYCIN
     Indication: Chemotherapy
     Dosage: UNK
     Route: 033

REACTIONS (1)
  - Toxic encephalopathy [Recovered/Resolved]
